FAERS Safety Report 7684390-2 (Version None)
Quarter: 2011Q3

REPORT INFORMATION
  Report Type: 
  Country: None (occurrence: None)
  Receive Date: 20110816
  Receipt Date: 20110815
  Transmission Date: 20111222
  Serious: Yes (Hospitalization)
  Sender: FDA-Public Use
  Company Number: JP-BRISTOL-MYERS SQUIBB COMPANY-15962350

PATIENT
  Age: 72 Year
  Sex: Female
  Weight: 45 kg

DRUGS (5)
  1. ORENCIA [Suspect]
     Indication: MUSCULOSKELETAL PAIN
     Dosage: 19JAN11,02FEB11,02MAR11,30MAR11,27APR11,01JUN11
     Route: 041
     Dates: start: 20110105
  2. METHOTREXATE [Concomitant]
  3. SULFASALAZINE [Concomitant]
  4. ALFAROL [Concomitant]
     Indication: OSTEOPOROSIS
  5. SELBEX [Concomitant]
     Indication: GASTRITIS

REACTIONS (1)
  - INTERSTITIAL LUNG DISEASE [None]
